FAERS Safety Report 18333132 (Version 2)
Quarter: 2020Q4

REPORT INFORMATION
  Report Type: Spontaneous
  Country: US (occurrence: US)
  Receive Date: 20201001
  Receipt Date: 20201009
  Transmission Date: 20210113
  Serious: Yes (Death, Hospitalization, Other)
  Sender: FDA-Public Use
  Company Number: US-IBIGEN-2020.09338

PATIENT
  Age: 60 Year
  Sex: Male

DRUGS (9)
  1. DEXAMETHASONE. [Suspect]
     Active Substance: DEXAMETHASONE
     Indication: PLASMA CELL MYELOMA
  2. CARFILZOMIB [Suspect]
     Active Substance: CARFILZOMIB
     Indication: PLASMA CELL MYELOMA
  3. DEXAMETHASONE. [Concomitant]
     Active Substance: DEXAMETHASONE
     Indication: SQUAMOUS CELL CARCINOMA
  4. CEMIPLIMAB [Suspect]
     Active Substance: CEMIPLIMAB
     Indication: PLASMA CELL MYELOMA
     Dosage: 350 MG INTRAVENOUSLY EVERY 3 WEEKS, WITHDRAWN AFTER 1 YEAR
     Route: 042
  5. DARATUMUMAB [Concomitant]
     Active Substance: DARATUMUMAB
     Indication: SQUAMOUS CELL CARCINOMA
  6. FLUCONAZOLE. [Suspect]
     Active Substance: FLUCONAZOLE
  7. DARATUMUMAB [Suspect]
     Active Substance: DARATUMUMAB
     Indication: PLASMA CELL MYELOMA
  8. AMPICILLIN [Suspect]
     Active Substance: AMPICILLIN
  9. CEMIPLIMAB [Suspect]
     Active Substance: CEMIPLIMAB
     Indication: METASTATIC SQUAMOUS CELL CARCINOMA
     Route: 042

REACTIONS (14)
  - Alanine aminotransferase increased [Recovered/Resolved]
  - Blood alkaline phosphatase increased [Recovering/Resolving]
  - Multiple organ dysfunction syndrome [Fatal]
  - Gamma-glutamyltransferase increased [Recovering/Resolving]
  - Anaemia [Fatal]
  - Pleural effusion [Fatal]
  - Immune-mediated hepatitis [Recovered/Resolved]
  - Portal hypertensive gastropathy [Unknown]
  - Aspartate aminotransferase increased [Recovered/Resolved]
  - Hepatotoxicity [Fatal]
  - Hepatic cirrhosis [Fatal]
  - Generalised oedema [Fatal]
  - Hepatorenal syndrome [Fatal]
  - Condition aggravated [Recovering/Resolving]
